FAERS Safety Report 8710243 (Version 2)
Quarter: 2013Q4

REPORT INFORMATION
  Report Type: Spontaneous
  Country: US (occurrence: US)
  Receive Date: 20120807
  Receipt Date: 20131106
  Transmission Date: 20140711
  Serious: Yes (Death)
  Sender: FDA-Public Use
  Company Number: US-009507513-1208USA001838

PATIENT
  Sex: Male

DRUGS (2)
  1. PEGINTRON [Suspect]
     Indication: CHRONIC HEPATITIS C
     Dosage: 1 DF, QW
  2. REBETOL [Suspect]
     Indication: CHRONIC HEPATITIS C

REACTIONS (1)
  - Hepatic cirrhosis [Fatal]
